FAERS Safety Report 5650646-8 (Version None)
Quarter: 2008Q1

REPORT INFORMATION
  Report Type: 
  Country: None (occurrence: None)
  Receive Date: 20080305
  Receipt Date: 20080225
  Transmission Date: 20080703
  Serious: Yes (Other)
  Sender: FDA-Public Use
  Company Number: PHEH2006US01252

PATIENT
  Age: 56 Year
  Sex: Male
  Weight: 84.807 kg

DRUGS (10)
  1. ZOMETA [Suspect]
     Indication: METASTASES TO BONE
     Dosage: UNK MONTHLY
  2. AREDIA [Suspect]
  3. COUMADIN [Concomitant]
  4. ZOLOFT [Concomitant]
     Dosage: 50MG QHS
  5. ASPIRIN [Concomitant]
     Dosage: 81MG UNK
  6. MULTIVITAMIN ^LAPPE^ [Concomitant]
  7. ASCORBIC ACID [Concomitant]
  8. VITAMIN B [Concomitant]
  9. IRON [Concomitant]
  10. CALCIUM [Concomitant]

REACTIONS (21)
  - ATROPHY [None]
  - BONE DEBRIDEMENT [None]
  - BONE DENSITY INCREASED [None]
  - BONE DISORDER [None]
  - CEREBRAL INFARCTION [None]
  - ENDODONTIC PROCEDURE [None]
  - EXCESSIVE GRANULATION TISSUE [None]
  - EXTRASKELETAL OSSIFICATION [None]
  - FRACTURE [None]
  - HEADACHE [None]
  - IMPAIRED HEALING [None]
  - INFECTION [None]
  - INFLAMMATION [None]
  - ISCHAEMIA [None]
  - METASTATIC NEOPLASM [None]
  - NUCLEAR MAGNETIC RESONANCE IMAGING ABNORMAL [None]
  - OEDEMA [None]
  - OSTEONECROSIS [None]
  - PAIN [None]
  - TOOTH LOSS [None]
  - X-RAY ABNORMAL [None]
